FAERS Safety Report 13048759 (Version 2)
Quarter: 2017Q1

REPORT INFORMATION
  Report Type: Spontaneous
  Country: US (occurrence: US)
  Receive Date: 20161221
  Receipt Date: 20170103
  Transmission Date: 20170428
  Serious: Yes (Life-Threatening, Hospitalization, Other)
  Sender: FDA-Public Use
  Company Number: US-DRREDDYS-USA/USA/16/0085747

PATIENT
  Age: 63 Year
  Sex: Female

DRUGS (1)
  1. ZOLEDRONIC ACID. [Suspect]
     Active Substance: ZOLEDRONIC ACID
     Indication: OSTEOPOROSIS
     Route: 042

REACTIONS (12)
  - Acute kidney injury [Recovered/Resolved]
  - Pulmonary oedema [Recovered/Resolved]
  - Multiple organ dysfunction syndrome [Recovered/Resolved]
  - Acute phase reaction [Recovered/Resolved]
  - Hypotension [Recovered/Resolved]
  - Stress cardiomyopathy [Recovered/Resolved]
  - Pyrexia [Unknown]
  - Tachypnoea [Unknown]
  - Headache [Unknown]
  - Tachycardia [Unknown]
  - Respiratory distress [Recovered/Resolved]
  - Mental disorder [Unknown]
